FAERS Safety Report 7350058-5 (Version None)
Quarter: 2011Q1

REPORT INFORMATION
  Report Type: 
  Country: None (occurrence: None)
  Receive Date: 20110314
  Receipt Date: 20110309
  Transmission Date: 20110831
  Serious: Yes (Hospitalization)
  Sender: FDA-Public Use
  Company Number: US-ROCHE-764649

PATIENT
  Age: 82 Year
  Sex: Male

DRUGS (3)
  1. XELODA [Suspect]
     Indication: METASTATIC GASTRIC CANCER
     Route: 065
  2. EPIRUBICIN [Concomitant]
     Indication: METASTATIC GASTRIC CANCER
  3. OXALIPLATIN [Concomitant]
     Indication: METASTATIC GASTRIC CANCER

REACTIONS (1)
  - DEMENTIA [None]
